FAERS Safety Report 10908930 (Version 2)
Quarter: 2015Q1

REPORT INFORMATION
  Report Type: Report from Study
  Country: US (occurrence: US)
  Receive Date: 20150312
  Receipt Date: 20150326
  Transmission Date: 20150721
  Serious: Yes (Other)
  Sender: FDA-Public Use
  Company Number: PHHO2015US003646

PATIENT
  Age: 51 Year
  Sex: Male
  Weight: 96.6 kg

DRUGS (7)
  1. INC424 [Suspect]
     Active Substance: RUXOLITINIB
     Indication: POLYCYTHAEMIA VERA
     Dosage: 25 MG, BID
     Route: 048
     Dates: start: 20110118
  2. TESTOSTERONE CYPIONATE. [Suspect]
     Active Substance: TESTOSTERONE CYPIONATE
     Indication: BLOOD TESTOSTERONE DECREASED
     Dosage: 50 MG, QD
     Route: 030
     Dates: start: 20110614, end: 20110705
  3. ANDROGEL [Suspect]
     Active Substance: TESTOSTERONE
     Indication: BLOOD TESTOSTERONE DECREASED
     Dosage: 1.25 G, UNK
     Route: 062
     Dates: start: 20120605, end: 20120730
  4. FLOMAX//MORNIFLUMATE [Concomitant]
     Dosage: 0.4 MG, QD
     Route: 048
     Dates: start: 20120404, end: 20150302
  5. TESTOSTERONE. [Suspect]
     Active Substance: TESTOSTERONE
     Indication: BLOOD TESTOSTERONE DECREASED
     Dosage: 30 MG, QD
     Route: 062
     Dates: start: 20120320, end: 20120604
  6. INC424 [Suspect]
     Active Substance: RUXOLITINIB
     Dosage: 25 MG AM; 20 MG PM
     Route: 048
     Dates: start: 20150202
  7. TESTOSTERONE. [Suspect]
     Active Substance: TESTOSTERONE
     Dosage: 40 MG, QD
     Route: 062
     Dates: start: 20120731, end: 20141115

REACTIONS (2)
  - Second primary malignancy [Recovering/Resolving]
  - Prostate cancer [Recovering/Resolving]

NARRATIVE: CASE EVENT DATE: 20141201
